FAERS Safety Report 25955323 (Version 1)
Quarter: 2025Q4

REPORT INFORMATION
  Report Type: Spontaneous
  Country: CA (occurrence: CA)
  Receive Date: 20251024
  Receipt Date: 20251024
  Transmission Date: 20260117
  Serious: Yes (Death, Other)
  Sender: AMGEN
  Company Number: CA-AMGEN-CANSP2025209117

PATIENT
  Age: 65 Year
  Sex: Male

DRUGS (3)
  1. RITUXIMAB [Suspect]
     Active Substance: RITUXIMAB
     Indication: Microscopic polyangiitis
     Dosage: UNK
     Route: 065
  2. PEMBROLIZUMAB [Concomitant]
     Active Substance: PEMBROLIZUMAB
     Indication: Tonsil cancer
     Route: 065
  3. PREDNISONE [Concomitant]
     Active Substance: PREDNISONE
     Indication: Microscopic polyangiitis
     Route: 065

REACTIONS (2)
  - Tonsil cancer [Unknown]
  - Death [Fatal]
